FAERS Safety Report 14621103 (Version 1)
Quarter: 2018Q1

REPORT INFORMATION
  Report Type: Spontaneous
  Country: DE (occurrence: DE)
  Receive Date: 20180310
  Receipt Date: 20180310
  Transmission Date: 20180509
  Serious: Yes (Congenital Anomaly)
  Sender: FDA-Public Use
  Company Number: DE-AUROBINDO-AUR-APL-2018-012501

PATIENT
  Age: 1 Day
  Sex: Male
  Weight: 2.94 kg

DRUGS (8)
  1. LANTUS [Concomitant]
     Active Substance: INSULIN GLARGINE
     Indication: GESTATIONAL DIABETES
     Dosage: 26 INTERNATIONAL UNIT, ONCE A DAY, 60MG/D, INITIAL 60MG/D, WEEK 7+2 TO10+2 30MG/D, 60MG/D
     Route: 064
  2. OMEPRAZOL                          /00661201/ [Concomitant]
     Active Substance: OMEPRAZOLE
     Indication: VOMITING IN PREGNANCY
     Dosage: 20 MILLIGRAM, ONCE A DAY, 60MG/D, INITIAL 60MG/D, WEEK 7+2 TO10+2 30MG/D, 60MG/D
     Route: 064
     Dates: start: 20160929, end: 20170429
  3. DULOXETINE. [Suspect]
     Active Substance: DULOXETINE
     Indication: DEPRESSION
     Dosage: 60 MG/D. INITIAL 60MG/D, WEEK 7+2 TO 10+2, 30MG/D, 60MG/D
     Route: 064
     Dates: start: 20160810, end: 20170429
  4. L-THYROXIN [Concomitant]
     Active Substance: LEVOTHYROXINE SODIUM
     Indication: HYPOTHYROIDISM
     Dosage: 75 MICROGRAM, ONCE A DAY, 60 MG/D, INITIAL 60MG/D, WEEK 7+2 TO10+2 30MG/D, 60MG/D
     Route: 064
     Dates: start: 20160810, end: 20170429
  5. FOLSAEURE [Concomitant]
     Active Substance: FOLIC ACID
     Indication: PROPHYLAXIS OF NEURAL TUBE DEFECT
     Dosage: UNK
     Route: 064
     Dates: start: 20160920, end: 20170429
  6. PRESINOL [Concomitant]
     Active Substance: METHYLDOPA
     Indication: GESTATIONAL HYPERTENSION
     Dosage: 60MG/D, INITIAL 60MG/D, WEEK 7+2 TO 10+2 30MG/D, 60MG/D
     Route: 064
  7. ARIPIPRAZOLE. [Concomitant]
     Active Substance: ARIPIPRAZOLE
     Indication: PSYCHOTIC DISORDER
     Dosage: 5 MILLIGRAM, ONCE A DAY, 60MG/D, INITIAL 60MG/D, WEEK 7+2 TO10+2 30MG/D, 60MG/D
     Route: 064
     Dates: start: 20160810, end: 20160921
  8. NOVORAPID [Concomitant]
     Active Substance: INSULIN ASPART
     Indication: GESTATIONAL DIABETES
     Dosage: 54 INTERNATIONAL UNIT, ONCE A DAY, 60MG/D, INITIAL 60MG/D, WEEK 7+2 TO 10+2 30MG/D, 60MG/D
     Route: 064

REACTIONS (2)
  - Hypospadias [Not Recovered/Not Resolved]
  - Foetal exposure during pregnancy [Unknown]

NARRATIVE: CASE EVENT DATE: 20170429
